FAERS Safety Report 9212808 (Version 3)
Quarter: 2013Q2

REPORT INFORMATION
  Report Type: Spontaneous
  Country: US (occurrence: US)
  Receive Date: 20130405
  Receipt Date: 20130522
  Transmission Date: 20140414
  Serious: No
  Sender: FDA-Public Use
  Company Number: US-009507513-1304USA000452

PATIENT
  Age: 51 Year
  Sex: Male

DRUGS (18)
  1. SAPHRIS [Suspect]
     Indication: BIPOLAR DISORDER
     Dosage: 10 MG, QD
     Route: 060
     Dates: start: 201208
  2. TRILEPTAL [Concomitant]
  3. LORAZEPAM [Concomitant]
  4. PRILOSEC [Concomitant]
  5. COGENTIN [Concomitant]
  6. CALCIPOTRIENE [Concomitant]
  7. CLOBETASOL PROPIONATE [Concomitant]
  8. CLOTRIMAZOLE [Concomitant]
  9. ZOCOR [Concomitant]
  10. EFFEXOR [Concomitant]
  11. LEVOCETIRIZINE [Concomitant]
  12. DIPHENHYDRAMINE HYDROCHLORIDE [Concomitant]
  13. TEMAZEPAM [Concomitant]
  14. DALMANE [Concomitant]
  15. HYDROXYZINE [Concomitant]
  16. DEPAKOTE [Concomitant]
  17. CONCERTA [Concomitant]
  18. ADDERALL TABLETS [Concomitant]

REACTIONS (9)
  - Tooth discolouration [Not Recovered/Not Resolved]
  - Weight increased [Not Recovered/Not Resolved]
  - Fatigue [Not Recovered/Not Resolved]
  - Movement disorder [Not Recovered/Not Resolved]
  - Stomatitis [Not Recovered/Not Resolved]
  - Product blister packaging issue [Unknown]
  - Increased appetite [Unknown]
  - Feeling abnormal [Unknown]
  - Weight increased [Unknown]
